FAERS Safety Report 15765404 (Version 1)
Quarter: 2018Q4

REPORT INFORMATION
  Report Type: Spontaneous
  Country: US (occurrence: US)
  Receive Date: 20181207
  Receipt Date: 20181207
  Transmission Date: 20190205
  Serious: No
  Sender: FDA-Public Use
  Company Number: None

PATIENT
  Age: 67 Year
  Sex: Female

DRUGS (2)
  1. HERCEPTIN [Concomitant]
     Active Substance: TRASTUZUMAB
  2. IBRANCE [Suspect]
     Active Substance: PALBOCICLIB
     Dates: start: 20181030

REACTIONS (1)
  - Stomatitis [None]

NARRATIVE: CASE EVENT DATE: 20181106
